FAERS Safety Report 9110680 (Version 2)
Quarter: 2014Q1

REPORT INFORMATION
  Report Type: Spontaneous
  Country: US (occurrence: US)
  Receive Date: 20130219
  Receipt Date: 20140213
  Transmission Date: 20141002
  Serious: No
  Sender: FDA-Public Use
  Company Number: US-BRISTOL-MYERS SQUIBB COMPANY-17201245

PATIENT
  Age: 84 Year
  Sex: Female

DRUGS (5)
  1. ORENCIA [Suspect]
     Indication: PSORIATIC ARTHROPATHY
     Route: 042
     Dates: start: 20050805
  2. ORENCIA [Suspect]
     Indication: RHEUMATOID ARTHRITIS
     Route: 042
     Dates: start: 20050805
  3. METHOTREXATE [Suspect]
  4. LEUCOVORIN [Suspect]
  5. CELEBREX [Suspect]

REACTIONS (3)
  - Dysgeusia [Unknown]
  - Mouth ulceration [Unknown]
  - Urinary tract infection [Unknown]
